FAERS Safety Report 7495551-X (Version None)
Quarter: 2011Q2

REPORT INFORMATION
  Report Type: 
  Country: None (occurrence: None)
  Receive Date: 20110523
  Receipt Date: 20110513
  Transmission Date: 20111010
  Serious: Yes (Hospitalization, Other)
  Sender: FDA-Public Use
  Company Number: US-ASTELLAS-2011US002212

PATIENT
  Sex: Male
  Weight: 166 kg

DRUGS (11)
  1. SODIUM BICARBONATE [Concomitant]
     Indication: PRODUCT USED FOR UNKNOWN INDICATION
     Dosage: 650 MG, TID
     Route: 065
  2. PROGRAF [Suspect]
     Indication: LIVER TRANSPLANT
     Dosage: 3 MG, BID
     Route: 048
     Dates: start: 20080524
  3. AMLODIPINE [Concomitant]
     Indication: HYPERTENSION
     Dosage: UNK
     Route: 065
  4. MAGNESIUM OXIDE [Concomitant]
     Indication: PRODUCT USED FOR UNKNOWN INDICATION
     Dosage: 400 MG, BID
     Route: 048
  5. KAYEXALATE [Concomitant]
     Indication: BLOOD POTASSIUM INCREASED
     Dosage: 30 MG, UID/QD
     Route: 065
  6. NYSTOP [Concomitant]
     Indication: ANTIFUNGAL TREATMENT
     Dosage: 1000 U/G, UID/QD
     Route: 061
  7. TRIAMCINOLONE [Concomitant]
     Indication: PRURITUS
     Dosage: 1.1 %, TID X7 DAYS
     Route: 061
  8. BUMETANIDE [Concomitant]
     Indication: DIURETIC THERAPY
     Dosage: 2 MG, UID/QD
     Route: 065
  9. CALCIUM CITRATE [Concomitant]
     Indication: PRODUCT USED FOR UNKNOWN INDICATION
     Dosage: 600 MG, BID
     Route: 065
  10. DESENEX [Concomitant]
     Indication: ANTIFUNGAL TREATMENT
     Dosage: 2 %, UNKNOWN/D
     Route: 061
  11. CALCITRIOL [Concomitant]
     Indication: VITAMIN SUPPLEMENTATION
     Dosage: 0.25 UG, UID/QD
     Route: 065

REACTIONS (5)
  - SKIN ULCER [None]
  - SKIN CANCER [None]
  - POOR PERIPHERAL CIRCULATION [None]
  - OPEN WOUND [None]
  - LYMPHOEDEMA [None]
